FAERS Safety Report 5123827-X (Version None)
Quarter: 2006Q4

REPORT INFORMATION
  Report Type: 
  Country: None (occurrence: None)
  Receive Date: 20061010
  Receipt Date: 20060804
  Transmission Date: 20070319
  Serious: Yes (Death, Hospitalization)
  Sender: FDA-Public Use
  Company Number: US-GLAXOSMITHKLINE-A0615251A

PATIENT
  Age: 44 Year
  Sex: Female
  Weight: 72.7 kg

DRUGS (12)
  1. SEREVENT [Suspect]
     Indication: ASTHMA
     Dosage: 1PUFF TWICE PER DAY
     Route: 055
  2. ADVAIR DISKUS 100/50 [Suspect]
     Indication: ASTHMA
     Dosage: 1PUFF TWICE PER DAY
     Route: 055
     Dates: end: 20040701
  3. SEREVENT [Suspect]
     Route: 055
  4. PREDNISONE [Concomitant]
  5. THEOPHYLLINE [Concomitant]
  6. SINGULAIR [Concomitant]
  7. SPIRIVA [Concomitant]
  8. PULMICORT [Concomitant]
  9. BONIVA [Concomitant]
  10. DENAVIR [Concomitant]
  11. ZYRTEC [Concomitant]
  12. ALBUTEROL [Concomitant]

REACTIONS (5)
  - ASTHMA [None]
  - CARDIAC ARREST [None]
  - ORAL CANDIDIASIS [None]
  - RESPIRATORY DISTRESS [None]
  - SUDDEN DEATH [None]
